FAERS Safety Report 9202634 (Version 2)
Quarter: 2013Q2

REPORT INFORMATION
  Report Type: Spontaneous
  Country: US (occurrence: US)
  Receive Date: 20130401
  Receipt Date: 20130614
  Transmission Date: 20140414
  Serious: Yes (Hospitalization)
  Sender: FDA-Public Use
  Company Number: US-GILEAD-2013-0072642

PATIENT
  Sex: Female

DRUGS (2)
  1. LETAIRIS [Suspect]
     Indication: PULMONARY HYPERTENSION
     Route: 048
     Dates: start: 20080701
  2. LETAIRIS [Suspect]
     Indication: RHEUMATOID ARTHRITIS

REACTIONS (3)
  - Bronchopneumonia [Unknown]
  - Diarrhoea [Unknown]
  - Vomiting [Unknown]
